FAERS Safety Report 7201691-2 (Version None)
Quarter: 2010Q4

REPORT INFORMATION
  Report Type: 
  Country: None (occurrence: None)
  Receive Date: 20101216
  Receipt Date: 20101206
  Transmission Date: 20110411
  Serious: Yes (Hospitalization)
  Sender: FDA-Public Use
  Company Number: 777568

PATIENT
  Age: 32 Year
  Sex: Male

DRUGS (8)
  1. HYDROMORPHONE HYDROCHLORIDE [Suspect]
     Indication: PAIN
     Dosage: SEE IMAGE
  2. MORPHINE SULFATE [Suspect]
     Indication: PAIN
     Dosage: SEE IMAGE
     Route: 042
  3. ACETAMINOPHEN AND HYDROCODONE BITARTRATE [Concomitant]
  4. (METHADONE) [Concomitant]
  5. (CLONIDINE) [Concomitant]
  6. IBUPROFEN [Concomitant]
  7. KETOROLAC TROMETHAMINE [Concomitant]
  8. ACETAMINOPHEN AND OXYCODONE HCL [Concomitant]

REACTIONS (3)
  - CONDITION AGGRAVATED [None]
  - HYPERAESTHESIA [None]
  - PAIN [None]
